FAERS Safety Report 20003004 (Version 1)
Quarter: 2021Q4

REPORT INFORMATION
  Report Type: Spontaneous
  Country: IR (occurrence: IR)
  Receive Date: 20211027
  Receipt Date: 20211027
  Transmission Date: 20220303
  Serious: Yes (Other)
  Sender: FDA-Public Use
  Company Number: IR-PFIZER INC-202101385462

PATIENT
  Age: 44 Year
  Sex: Male

DRUGS (12)
  1. HYDROCORTISONE SODIUM SUCCINATE [Interacting]
     Active Substance: HYDROCORTISONE SODIUM SUCCINATE
     Indication: COVID-19
     Dosage: 50 MG, TDS
  2. SIROLIMUS [Interacting]
     Active Substance: SIROLIMUS
     Indication: COVID-19
     Dosage: 1 MG, 2X/DAY
  3. SIROLIMUS [Interacting]
     Active Substance: SIROLIMUS
     Dosage: 1 MG, 1X/DAY, REDUCED TO (1MG DAILY),
  4. PREDNISOLONE [Interacting]
     Active Substance: PREDNISOLONE
     Indication: COVID-19
     Dosage: 5 MG, 1X/DAY
  5. PREDNISOLONE [Interacting]
     Active Substance: PREDNISOLONE
     Dosage: 5 MG, 2X/DAY
  6. MYCOPHENOLATE SODIUM [Interacting]
     Active Substance: MYCOPHENOLATE SODIUM
     Indication: COVID-19
     Dosage: 720 MG, 2X/DAY
  7. MYCOPHENOLATE SODIUM [Interacting]
     Active Substance: MYCOPHENOLATE SODIUM
     Dosage: 360 MG, 2X/DAY
  8. LOPINAVIR\RITONAVIR [Interacting]
     Active Substance: LOPINAVIR\RITONAVIR
     Indication: COVID-19
     Dosage: UNK UNK, 2X/DAY, (400MG/100MG BD),
  9. HYDROXYCHLOROQUINE [Interacting]
     Active Substance: HYDROXYCHLOROQUINE
     Indication: COVID-19
     Dosage: 400 MG, STAT
  10. OSELTAMIVIR [Interacting]
     Active Substance: OSELTAMIVIR
     Indication: COVID-19
     Dosage: 75 MG, 2X/DAY
  11. TACROLIMUS [Interacting]
     Active Substance: TACROLIMUS
     Indication: COVID-19
     Dosage: 1 MG
  12. TACROLIMUS [Interacting]
     Active Substance: TACROLIMUS
     Dosage: 1 MG, 2X/DAY

REACTIONS (7)
  - Leukopenia [Unknown]
  - Thrombocytopenia [Unknown]
  - Pneumonitis [Unknown]
  - Dyspnoea [Unknown]
  - Oxygen saturation decreased [Unknown]
  - Drug interaction [Unknown]
  - Off label use [Unknown]
